FAERS Safety Report 21839308 (Version 3)
Quarter: 2023Q1

REPORT INFORMATION
  Report Type: Spontaneous
  Country: US (occurrence: US)
  Receive Date: 20230109
  Receipt Date: 20230303
  Transmission Date: 20230418
  Serious: No
  Sender: FDA-Public Use
  Company Number: US-PFIZER INC-PV202300003958

PATIENT
  Age: 16 Year
  Sex: Female
  Weight: 50.8 kg

DRUGS (3)
  1. EUCRISA [Suspect]
     Active Substance: CRISABOROLE
     Indication: Eczema
     Dosage: UNK, 2X/DAY
     Dates: start: 20230122
  2. DUPIXENT [Concomitant]
     Active Substance: DUPILUMAB
     Indication: Eczema
     Dosage: EVERY 2 WEEKS
     Dates: start: 20230118
  3. DUPIXENT [Concomitant]
     Active Substance: DUPILUMAB
     Indication: Antiallergic therapy

REACTIONS (7)
  - Malaise [Unknown]
  - Eczema [Recovering/Resolving]
  - Skin swelling [Recovered/Resolved]
  - Pruritus [Recovered/Resolved]
  - Drug hypersensitivity [Recovered/Resolved]
  - Pain of skin [Recovered/Resolved]
  - Skin burning sensation [Recovered/Resolved]
